FAERS Safety Report 8127744-2 (Version None)
Quarter: 2011Q4

REPORT INFORMATION
  Report Type: 
  Country: None (occurrence: None)
  Receive Date: 20111230
  Receipt Date: 20110707
  Transmission Date: 20120403
  Serious: Yes (Other)
  Sender: FDA-Public Use
  Company Number: 289474USA

PATIENT
  Sex: Female

DRUGS (1)
  1. DIAZEPAM [Suspect]
     Indication: ANXIETY
     Dosage: (2 MG)

REACTIONS (3)
  - DRUG EFFECT DECREASED [None]
  - ANXIETY [None]
  - DRUG WITHDRAWAL SYNDROME [None]
